FAERS Safety Report 18501801 (Version 1)
Quarter: 2020Q4

REPORT INFORMATION
  Report Type: Report from Study
  Country: US (occurrence: US)
  Receive Date: 20201113
  Receipt Date: 20201113
  Transmission Date: 20210114
  Serious: Yes (Hospitalization)
  Sender: FDA-Public Use
  Company Number: US-BRISTOL-MYERS SQUIBB COMPANY-BMS-2020-095785

PATIENT
  Age: 53 Year
  Sex: Male
  Weight: 123 kg

DRUGS (2)
  1. VX15/2503 [Suspect]
     Active Substance: PEPINEMAB
     Indication: MALIGNANT MELANOMA
     Dosage: 1900.5 MILLIGRAM, Q3WK
     Route: 042
     Dates: start: 20190103, end: 20200124
  2. NIVOLUMAB [Suspect]
     Active Substance: NIVOLUMAB
     Indication: MALIGNANT MELANOMA
     Dosage: 360 MILLIGRAM, Q3WK
     Route: 042
     Dates: start: 20190103, end: 20200124

REACTIONS (3)
  - Wound dehiscence [Recovering/Resolving]
  - Incision site erythema [Recovering/Resolving]
  - Incision site cellulitis [Recovering/Resolving]

NARRATIVE: CASE EVENT DATE: 20190328
